FAERS Safety Report 11963556 (Version 1)
Quarter: 2016Q1

REPORT INFORMATION
  Report Type: Spontaneous
  Country: US (occurrence: None)
  Receive Date: 20160121
  Receipt Date: 20160121
  Transmission Date: 20160526
  Serious: Yes (Other)
  Sender: FDA-Public Use
  Company Number: None

PATIENT
  Age: 64 Year
  Sex: Female
  Weight: 57.15 kg

DRUGS (19)
  1. VYTORIN [Concomitant]
     Active Substance: EZETIMIBE\SIMVASTATIN
  2. FLONASE [Concomitant]
     Active Substance: FLUTICASONE PROPIONATE
  3. VITAMIN D3 [Concomitant]
     Active Substance: CHOLECALCIFEROL
  4. SALINE NASAL SPRAY [Concomitant]
     Active Substance: SODIUM CHLORIDE
  5. REFRESH P.M. [Concomitant]
     Active Substance: MINERAL OIL\PETROLATUM
  6. COQ 10 [Concomitant]
     Active Substance: UBIDECARENONE
  7. IPRATROPIUM BROMIDE NASAL SPRAY [Concomitant]
  8. PRESERVISION AREDS 2 [Concomitant]
  9. BENZONATATE. [Suspect]
     Active Substance: BENZONATATE
     Indication: PRODUCTIVE COUGH
     Dosage: 1 - 2 CAPSULES  4 - 6 HRS AS NEEDS  TAKEN BY MOUTH
     Route: 048
     Dates: start: 20160118, end: 20160118
  10. SUDAFED [Concomitant]
     Active Substance: PSEUDOEPHEDRINE HYDROCHLORIDE
  11. CENTRUM SILVER FOR WOMEN [Concomitant]
     Active Substance: MINERALS\VITAMINS
  12. EFFEXOR [Concomitant]
     Active Substance: VENLAFAXINE HYDROCHLORIDE
  13. ACETAMINOPHEBUTALBITAL [Concomitant]
  14. PROBIOTIC [Concomitant]
     Active Substance: PROBIOTICS NOS
  15. CALCIUM CHEWS WITH D AND K [Concomitant]
  16. KLONOPIN [Concomitant]
     Active Substance: CLONAZEPAM
  17. GABAPENTIN. [Concomitant]
     Active Substance: GABAPENTIN
  18. ZYRTEC [Concomitant]
     Active Substance: CETIRIZINE HYDROCHLORIDE
  19. FLAXSEED [Concomitant]
     Active Substance: FLAX SEED

REACTIONS (3)
  - Skin disorder [None]
  - Vision blurred [None]
  - Headache [None]

NARRATIVE: CASE EVENT DATE: 20160118
